FAERS Safety Report 16869436 (Version 1)
Quarter: 2019Q3

REPORT INFORMATION
  Report Type: Report from Study
  Country: US (occurrence: US)
  Receive Date: 20190930
  Receipt Date: 20190930
  Transmission Date: 20191005
  Serious: Yes (Hospitalization)
  Sender: FDA-Public Use
  Company Number: US-BAYER-2019-173247

PATIENT
  Sex: Male

DRUGS (1)
  1. NEXAVAR [Suspect]
     Active Substance: SORAFENIB
     Indication: HEPATOCELLULAR CARCINOMA
     Dosage: 600 MG (2 TABLETS EVERY MORNING AND ONE IN THE EVENING  (AT LEAST 1 HOUR BEFORE OR 2 HOURS AFTER)
     Route: 048

REACTIONS (2)
  - Off label use [None]
  - Cardiac disorder [Recovered/Resolved]
